FAERS Safety Report 24367659 (Version 1)
Quarter: 2024Q3

REPORT INFORMATION
  Report Type: Spontaneous
  Country: JP (occurrence: JP)
  Receive Date: 20240926
  Receipt Date: 20240926
  Transmission Date: 20241017
  Serious: Yes (Other)
  Sender: BRISTOL MYERS SQUIBB
  Company Number: JP-BRISTOL-MYERS SQUIBB COMPANY-2024-152164

PATIENT
  Age: 90 Year
  Sex: Male

DRUGS (2)
  1. VIDAZA [Suspect]
     Active Substance: AZACITIDINE
     Indication: Myelodysplastic syndrome
     Dosage: 1
     Route: 042
  2. INSULIN NOS [Concomitant]
     Active Substance: INSULIN NOS
     Indication: Fulminant type 1 diabetes mellitus

REACTIONS (1)
  - Blood glucose increased [Unknown]
